FAERS Safety Report 11862643 (Version 1)
Quarter: 2015Q4

REPORT INFORMATION
  Report Type: Spontaneous
  Country: RU (occurrence: RU)
  Receive Date: 20151223
  Receipt Date: 20151223
  Transmission Date: 20160305
  Serious: Yes (Death, Hospitalization)
  Sender: FDA-Public Use
  Company Number: RU-DRREDDYS-USA/RUS/15/0054731

PATIENT
  Age: 35 Year
  Sex: Female

DRUGS (6)
  1. CEFTRIAXONE. [Suspect]
     Active Substance: CEFTRIAXONE
     Indication: MENINGITIS ASEPTIC
     Route: 065
     Dates: start: 20130214, end: 20130301
  2. MEROPENEM. [Suspect]
     Active Substance: MEROPENEM
     Indication: PSEUDOMONAS INFECTION
     Route: 065
     Dates: start: 20130402, end: 20130420
  3. CIPROFLOXACIN TABLETS [Suspect]
     Active Substance: CIPROFLOXACIN
     Indication: MENINGITIS ASEPTIC
     Route: 065
     Dates: start: 20130307, end: 20130401
  4. CEFEPIME [Suspect]
     Active Substance: CEFEPIME HYDROCHLORIDE
     Indication: MENINGITIS ASEPTIC
     Route: 065
     Dates: start: 20130307, end: 20130401
  5. VANCOMYCIN [Suspect]
     Active Substance: VANCOMYCIN
     Indication: MENINGITIS ASEPTIC
     Route: 042
     Dates: start: 20130301, end: 20130307
  6. VANCOMYCIN [Suspect]
     Active Substance: VANCOMYCIN
     Route: 042
     Dates: start: 20130430, end: 20150513

REACTIONS (24)
  - Shock [Fatal]
  - Oedema [Unknown]
  - Coma [None]
  - Hepatic failure [None]
  - Pseudomembranous colitis [Fatal]
  - Nephrotic syndrome [Unknown]
  - Hypoalbuminaemia [None]
  - Leukocytosis [Not Recovered/Not Resolved]
  - Pseudomonas test positive [None]
  - Abdominal pain upper [None]
  - Generalised tonic-clonic seizure [None]
  - Multiple-drug resistance [None]
  - Multi-organ failure [Fatal]
  - Electrolyte imbalance [Not Recovered/Not Resolved]
  - Anaemia [Not Recovered/Not Resolved]
  - Hydrothorax [Unknown]
  - Ascites [Unknown]
  - Drug resistance [Unknown]
  - Enterococcus test positive [None]
  - Renal failure [None]
  - Hypoproteinaemia [Not Recovered/Not Resolved]
  - Cardiovascular insufficiency [None]
  - Pseudomonas infection [Not Recovered/Not Resolved]
  - Cachexia [Unknown]
